FAERS Safety Report 5309362-4 (Version None)
Quarter: 2007Q2

REPORT INFORMATION
  Report Type: 
  Country: None (occurrence: None)
  Receive Date: 20070425
  Receipt Date: 20070425
  Transmission Date: 20071010
  Serious: No
  Sender: FDA-Public Use
  Company Number: None

PATIENT
  Sex: Male

DRUGS (2)
  1. VALACYCLOVIR [Suspect]
     Indication: ANTIVIRAL PROPHYLAXIS
     Dosage: 1 GM  TWICE DAILY  ORAL
     Route: 048
     Dates: start: 20070122, end: 20070227
  2. VALACYCLOVIR [Suspect]
     Dosage: 500MG  DAILY  ORAL
     Route: 048
     Dates: start: 20070305, end: 20070308

REACTIONS (2)
  - DIARRHOEA [None]
  - HYPERTENSION [None]
